FAERS Safety Report 7997959-2 (Version None)
Quarter: 2011Q4

REPORT INFORMATION
  Report Type: 
  Country: None (occurrence: None)
  Receive Date: 20111221
  Receipt Date: 20111219
  Transmission Date: 20120403
  Serious: Yes (Other)
  Sender: FDA-Public Use
  Company Number: PHHY2011DE67803

PATIENT
  Sex: Female
  Weight: 68 kg

DRUGS (3)
  1. ASTHMA-SPRAY [Concomitant]
  2. ZOLEDRONOC ACID [Suspect]
     Indication: OSTEOPOROSIS
     Dosage: 5 MG, UNK
     Route: 042
     Dates: start: 20091215, end: 20091215
  3. DEKRISTOL [Concomitant]
     Indication: OSTEOPOROSIS
     Dosage: UNK UKN, UNK

REACTIONS (3)
  - BONE PAIN [None]
  - THORACIC VERTEBRAL FRACTURE [None]
  - VERTEBRAL WEDGING [None]
